FAERS Safety Report 7619602-4 (Version None)
Quarter: 2011Q3

REPORT INFORMATION
  Report Type: 
  Country: None (occurrence: None)
  Receive Date: 20110719
  Receipt Date: 20071213
  Transmission Date: 20111222
  Serious: Yes (Death, Life-Threatening, Hospitalization, Other)
  Sender: FDA-Public Use
  Company Number: US-BAYER-200716259NA

PATIENT
  Age: 82 Year
  Sex: Female
  Weight: 73 kg

DRUGS (29)
  1. DILANTIN [Concomitant]
     Indication: CONVULSION
     Dosage: 350 MG/24HR, UNK
  2. HEPARIN [Concomitant]
  3. VISIPAQUE [Concomitant]
     Indication: CATHETERISATION CARDIAC
     Dosage: UNK
     Dates: start: 20031015
  4. PROTAMINE SULFATE [Concomitant]
  5. TRASYLOL [Suspect]
     Dosage: 25 CC/HR
     Route: 042
     Dates: start: 20031027, end: 20031027
  6. ETOMIDATE [Concomitant]
     Dosage: 20 MG/10 ML
  7. FENTANYL-100 [Concomitant]
  8. CIPROFLOXACIN HCL [Concomitant]
     Indication: URINARY TRACT INFECTION
     Dosage: 250 MG, BID
     Route: 048
     Dates: start: 20031016, end: 20031020
  9. CELEXA [Concomitant]
     Dosage: 20 MG/24HR, UNK
  10. ACETYLSALICYLIC ACID SRT [Concomitant]
     Dosage: 81 MG/24HR, UNK
  11. PROPOFOL [Concomitant]
  12. DOPAMINE HCL [Concomitant]
  13. PRIMACOR [Concomitant]
     Dosage: 0.5 MG/KG, UNK
  14. COZAAR [Concomitant]
     Dosage: 50 MG/24HR, UNK
  15. TRASYLOL [Suspect]
     Indication: MITRAL VALVE REPAIR
     Dosage: 100 CC LOADING DOSE
     Route: 042
     Dates: start: 20031027, end: 20031027
  16. PLAQUENIL [Concomitant]
     Dosage: 200 MG, BID
  17. ISOFLURANE [Concomitant]
  18. CEFAZOLIN [Concomitant]
     Dosage: 1 G, UNK
  19. TRASYLOL [Suspect]
     Indication: CORONARY ARTERY BYPASS
     Dosage: 1 ML, TEST DOSE
     Route: 042
     Dates: start: 20031027, end: 20031027
  20. LASIX [Concomitant]
     Dosage: 40 MG, BID
  21. ZETIA [Concomitant]
     Dosage: 10 MG/24HR, UNK
  22. RED BLOOD CELLS [Concomitant]
     Dosage: 2 U, UNK
     Route: 042
     Dates: start: 20031027
  23. TOPROL-XL [Concomitant]
     Dosage: 50 MG/24HR, UNK
  24. POTASSIUM CHLORIDE [Concomitant]
     Dosage: 20 MEQ, BID
  25. PANCURONIUM [Concomitant]
  26. MORPHINE [Concomitant]
  27. PHENYLEPHRINE HCL [Concomitant]
  28. LANOXIN [Concomitant]
     Dosage: 0.125 MG/24HR, UNK
  29. VERSED [Concomitant]

REACTIONS (10)
  - RENAL FAILURE [None]
  - PAIN [None]
  - EMOTIONAL DISTRESS [None]
  - ADVERSE EVENT [None]
  - UNEVALUABLE EVENT [None]
  - ANXIETY [None]
  - FEAR [None]
  - ANHEDONIA [None]
  - INJURY [None]
  - DEPRESSION [None]
